FAERS Safety Report 7708697-5 (Version None)
Quarter: 2011Q3

REPORT INFORMATION
  Report Type: 
  Country: None (occurrence: None)
  Receive Date: 20110825
  Receipt Date: 20110817
  Transmission Date: 20111222
  Serious: Yes (Death, Other)
  Sender: FDA-Public Use
  Company Number: US-BAYER-201041648NA

PATIENT
  Age: 83 Year
  Sex: Male
  Weight: 81.64 kg

DRUGS (34)
  1. FENTANYL [Concomitant]
     Dosage: UNK
     Route: 042
     Dates: start: 20040917
  2. LASIX [Concomitant]
     Dosage: 20 MG, QOD
  3. POTASSIUM CHLORIDE [Concomitant]
     Dosage: 10 MEQ, QOD
  4. GENTAMYCIN SULFATE [Concomitant]
     Dosage: 80 MG, QD
     Route: 042
     Dates: start: 20040927
  5. DOBUTAMINE HCL [Concomitant]
     Route: 048
  6. HEPARIN [Concomitant]
     Dosage: 30, 000 U, UNK
     Route: 042
     Dates: start: 20040917
  7. ANCEF [Concomitant]
     Dosage: 2 GMS, UNK
     Route: 042
     Dates: start: 20040917
  8. MILRINONE [Concomitant]
     Dosage: UNK
     Route: 042
     Dates: start: 20040917
  9. CALCIUM CHLORIDE [Concomitant]
     Dosage: 1 GM, UNK
     Route: 042
     Dates: start: 20040917
  10. ALLOPURINOL [Concomitant]
     Dosage: 100 MG, QD
  11. GARLIC [Concomitant]
     Dosage: TWICE DAILY
  12. VANCOMYCIN [Concomitant]
     Dosage: 1 GRAM Q 24 HOURS
     Route: 042
     Dates: start: 20040927
  13. NITROGLYCERIN [Concomitant]
     Dosage: UNK
     Route: 042
     Dates: start: 20040917
  14. COLCHICINE [Concomitant]
     Dosage: 0.6 MG, PRN
  15. TERAZOSIN HCL [Concomitant]
     Dosage: 5 MG, HS
  16. ALBUMIN (HUMAN) [Concomitant]
     Dosage: 50 ML, UNK
     Route: 042
     Dates: start: 20040917
  17. LIDOCAINE [Concomitant]
     Dosage: 100 MG, UNK
     Route: 042
     Dates: start: 20040917
  18. CEFAZOLIN [Concomitant]
     Dosage: 1 GM, UNK
     Route: 042
     Dates: start: 20040917
  19. TRASYLOL [Suspect]
     Indication: AORTIC VALVE REPLACEMENT
     Dosage: LOADING DOSE 2 MILLION UNITS FOLLOWED BY 50CC/HR X4 THEN ILLEGIBLE
     Route: 042
     Dates: start: 20040914, end: 20040914
  20. NIFEDIPINE [Concomitant]
     Route: 048
  21. DOPAMINE HCL [Concomitant]
     Dosage: 3 CC/HR
     Route: 042
     Dates: start: 20040917
  22. METFORMIN HCL [Concomitant]
     Dosage: 500 MG, BID
  23. SPIRONOLACTONE [Concomitant]
     Dosage: 25 MG, HALF TABLET TWICE DAILY
  24. FAMOTIDINE [Concomitant]
     Route: 048
  25. PHENYLEPHRINE HCL [Concomitant]
     Dosage: UNK
     Route: 042
     Dates: start: 20040917
  26. COUMADIN [Concomitant]
     Dosage: UNK
  27. TRASYLOL [Suspect]
     Indication: CORONARY ARTERY BYPASS
     Dosage: 20 CC/HR, UNK
     Route: 042
     Dates: start: 20040917, end: 20040917
  28. ASPIRIN [Concomitant]
     Route: 048
  29. PROPOFOL [Concomitant]
     Dosage: UNK
     Route: 042
     Dates: start: 20040917
  30. PROTAMINE [Concomitant]
     Dosage: 450 MG, UNK
     Route: 042
     Dates: start: 20040917
  31. MANNITOL [Concomitant]
     Dosage: 12.5 MG, UNK
     Route: 042
     Dates: start: 20040917
  32. LISINOPRIL [Concomitant]
     Dosage: 20 MG, 2 TABLETS IN THE MORNING AND ONE AT NIGHT
  33. DIGOXIN [Concomitant]
     Dosage: 0.125 MG, QD
  34. GLYBURIDE [Concomitant]
     Dosage: 2.5 MG, QD

REACTIONS (12)
  - PAIN [None]
  - INJURY [None]
  - STRESS [None]
  - MULTI-ORGAN FAILURE [None]
  - RENAL FAILURE [None]
  - RENAL INJURY [None]
  - FEAR [None]
  - DEATH [None]
  - EMOTIONAL DISTRESS [None]
  - ANXIETY [None]
  - RENAL IMPAIRMENT [None]
  - UNEVALUABLE EVENT [None]
